FAERS Safety Report 14177255 (Version 1)
Quarter: 2017Q4

REPORT INFORMATION
  Report Type: Spontaneous
  Country: US (occurrence: US)
  Receive Date: 20171110
  Receipt Date: 20171110
  Transmission Date: 20180321
  Serious: Yes (Hospitalization)
  Sender: FDA-Public Use
  Company Number: US-VISTAPHARM, INC.-VER201711-001043

PATIENT
  Age: 66 Year
  Sex: Male

DRUGS (2)
  1. NALOXONE [Suspect]
     Active Substance: NALOXONE
     Indication: MULTIPLE SCLEROSIS
  2. OXYCODONE [Suspect]
     Active Substance: OXYCODONE
     Indication: WOUND COMPLICATION

REACTIONS (2)
  - Drug interaction [Recovering/Resolving]
  - Unresponsive to stimuli [Recovering/Resolving]
